FAERS Safety Report 11195531 (Version 2)
Quarter: 2015Q3

REPORT INFORMATION
  Report Type: Spontaneous
  Country: US (occurrence: US)
  Receive Date: 20150617
  Receipt Date: 20150728
  Transmission Date: 20151125
  Serious: Yes (Hospitalization)
  Sender: FDA-Public Use
  Company Number: US-PFIZER INC-2015196840

PATIENT
  Age: 72 Year
  Sex: Male
  Weight: 78 kg

DRUGS (7)
  1. STOOL SOFTENER [Concomitant]
     Active Substance: DOCUSATE CALCIUM
  2. OXYCODONE [Concomitant]
     Active Substance: OXYCODONE
  3. SUTENT [Suspect]
     Active Substance: SUNITINIB MALATE
     Indication: NEOPLASM MALIGNANT
     Dosage: 50 MG, 28 DAYS ON/14 DAYS OFF
     Dates: start: 20150514, end: 20150709
  4. OXYCONTIN [Concomitant]
     Active Substance: OXYCODONE HYDROCHLORIDE
  5. ZANTAC [Concomitant]
     Active Substance: RANITIDINE HYDROCHLORIDE
  6. COMPAZINE [Concomitant]
     Active Substance: PROCHLORPERAZINE MALEATE
  7. SENNA [Concomitant]
     Active Substance: SENNA LEAF\SENNOSIDES\SENNOSIDES A AND B

REACTIONS (17)
  - Dysgeusia [Unknown]
  - Glossodynia [Unknown]
  - Gingival pain [Unknown]
  - Back pain [Unknown]
  - Disease progression [Unknown]
  - Diarrhoea [Unknown]
  - Neoplasm malignant [Unknown]
  - Oral pain [Unknown]
  - Decubitus ulcer [Unknown]
  - Dry skin [Unknown]
  - Pulmonary thrombosis [Unknown]
  - Constipation [Unknown]
  - Nausea [Unknown]
  - Decreased appetite [Unknown]
  - Dry mouth [Unknown]
  - Fatigue [Unknown]
  - Pain [Unknown]
